FAERS Safety Report 8056120-6 (Version None)
Quarter: 2012Q1

REPORT INFORMATION
  Report Type: 
  Country: None (occurrence: None)
  Receive Date: 20120119
  Receipt Date: 20120113
  Transmission Date: 20120608
  Serious: Yes (Death)
  Sender: FDA-Public Use
  Company Number: US-SANOFI-AVENTIS-2011SA085139

PATIENT
  Age: 68 Year
  Sex: Male
  Weight: 55.51 kg

DRUGS (12)
  1. BLINDED THERAPY [Suspect]
     Dates: start: 20110715, end: 20111214
  2. OXALIPLATIN [Suspect]
     Route: 041
     Dates: start: 20110715, end: 20110715
  3. DEXLANSOPRAZOLE [Concomitant]
     Dates: start: 20090101
  4. ASPIRIN [Concomitant]
     Dates: start: 19920101
  5. FLUOROURACIL [Suspect]
     Dates: start: 20110715
  6. LEUCOVORIN CALCIUM [Suspect]
     Dates: start: 20110715
  7. GRANISETRON [Concomitant]
     Dates: start: 20110715
  8. DEXAMETHASONE TAB [Concomitant]
     Dates: start: 20110715
  9. DIPHENOXYLATE [Concomitant]
     Dates: start: 20110722
  10. ACETAMINOPHEN [Concomitant]
     Dates: start: 20110804
  11. ALLOPURINOL [Concomitant]
     Dates: start: 20000101
  12. DIPHENHYDRAMINE HCL [Concomitant]
     Dates: start: 20110715

REACTIONS (4)
  - DEVICE RELATED INFECTION [None]
  - PYREXIA [None]
  - SEPSIS [None]
  - FEBRILE NEUTROPENIA [None]
